FAERS Safety Report 16445831 (Version 3)
Quarter: 2019Q3

REPORT INFORMATION
  Report Type: Other
  Country: IT (occurrence: IT)
  Receive Date: 20190618
  Receipt Date: 20190903
  Transmission Date: 20191004
  Serious: Yes (Hospitalization, Other)
  Sender: FDA-Public Use
  Company Number: IT-SERVIER-S19006080

PATIENT

DRUGS (31)
  1. UROMITEXAN [Suspect]
     Active Substance: MESNA
     Dosage: 492 MG, CYCLICALLY
     Route: 042
     Dates: start: 20181201, end: 20181202
  2. UROMITEXAN [Suspect]
     Active Substance: MESNA
     Dosage: 164 MG, CYCLICALLY
     Route: 042
     Dates: start: 20181203, end: 20181203
  3. TN UNSPECIFIED [IFOSFAMIDE] [Suspect]
     Active Substance: IFOSFAMIDE
     Indication: ACUTE LYMPHOCYTIC LEUKAEMIA
     Dosage: 936 MG, CYCLICALLY
     Route: 042
     Dates: start: 20181222, end: 20181222
  4. TN UNSPECIFIED [VINDESINE SULFATE] [Suspect]
     Active Substance: VINDESINE SULFATE
     Indication: ACUTE LYMPHOCYTIC LEUKAEMIA
     Dosage: 3.5 MG, CYCLICALLY
     Route: 042
     Dates: start: 20181221, end: 20181226
  5. DILATREND [Concomitant]
     Active Substance: CARVEDILOL
     Indication: PRODUCT USED FOR UNKNOWN INDICATION
     Dosage: 3.12 MG, QD
     Route: 048
  6. ANTRA [Concomitant]
     Active Substance: OMEPRAZOLE
     Indication: PRODUCT USED FOR UNKNOWN INDICATION
     Dosage: 20 MG
     Route: 042
  7. TN UNSPECIFIED [METHOTREXATE SODIUM] [Suspect]
     Active Substance: METHOTREXATE SODIUM
     Indication: ACUTE LYMPHOCYTIC LEUKAEMIA
     Dosage: 12 MG, CYCLICALLY
     Route: 037
     Dates: start: 20181115, end: 20181129
  8. ENDOXAN [Suspect]
     Active Substance: CYCLOPHOSPHAMIDE
     Dosage: 468 MG, UNK, CYCLICALLY
     Route: 042
     Dates: start: 20181201, end: 20181202
  9. DAUNOBLASTINA [Suspect]
     Active Substance: DAUNORUBICIN
     Indication: ACUTE LYMPHOCYTIC LEUKAEMIA
     Dosage: 35 MG, CYCLICALLY
     Route: 042
     Dates: start: 20181225, end: 20181225
  10. ENTEROGERMINA [Concomitant]
     Active Substance: BACILLUS SUBTILIS
     Indication: PRODUCT USED FOR UNKNOWN INDICATION
     Dosage: 1 DF, UNK
     Route: 048
     Dates: start: 20181207
  11. PERFALGAN [Concomitant]
     Active Substance: ACETAMINOPHEN
     Indication: PRODUCT USED FOR UNKNOWN INDICATION
     Route: 042
     Dates: start: 20181207, end: 20181207
  12. DEURSIL [Concomitant]
     Active Substance: URSODIOL
     Indication: PRODUCT USED FOR UNKNOWN INDICATION
     Dosage: 300 MG, QD
     Route: 048
     Dates: start: 20181228
  13. UROMITEXAN [Suspect]
     Active Substance: MESNA
     Dosage: 350 MG, CYCLICALLY
     Route: 042
     Dates: start: 20181222, end: 20181222
  14. UROMITEXAN [Suspect]
     Active Substance: MESNA
     Dosage: 2100 MG, CYCLICALLY
     Route: 042
     Dates: start: 20181223, end: 20181224
  15. TN UNSPECIFIED [METHOTREXATE SODIUM] [Suspect]
     Active Substance: METHOTREXATE SODIUM
     Dosage: 5850 MG, CYCLICALLY
     Route: 042
     Dates: start: 20181115, end: 20181221
  16. DEBRIDAT [Concomitant]
     Active Substance: TRIMEBUTINE MALEATE
     Indication: PRODUCT USED FOR UNKNOWN INDICATION
     Dosage: 0.5 DF, UNK
     Route: 042
     Dates: start: 20181207
  17. TN UNSPECIFIED [METHOTREXATE SODIUM] [Suspect]
     Active Substance: METHOTREXATE SODIUM
     Dosage: 12 MG, CYCLICALLY
     Route: 037
     Dates: start: 20181221, end: 20181221
  18. ENDOXAN [Suspect]
     Active Substance: CYCLOPHOSPHAMIDE
     Indication: ACUTE LYMPHOCYTIC LEUKAEMIA
     Dosage: 234 MG, UNK, CYCLICALLY
     Route: 042
     Dates: start: 20181130, end: 20181130
  19. DECADRON [Concomitant]
     Active Substance: DEXAMETHASONE
     Indication: PRODUCT USED FOR UNKNOWN INDICATION
     Dosage: 23.4 MG, QD
     Route: 048
     Dates: start: 20181221, end: 20181226
  20. TN UNSPECIFIED [VINCRISTINE] [Suspect]
     Active Substance: VINCRISTINE
     Indication: ACUTE LYMPHOCYTIC LEUKAEMIA
     Dosage: 1.75 MG, CYCLICALLY
     Route: 042
     Dates: start: 20181129, end: 20181204
  21. IG VENA [Concomitant]
     Active Substance: HUMAN IMMUNOGLOBULIN G
     Indication: BLOOD IMMUNOGLOBULIN G DECREASED
     Dosage: 15 G, UNK
     Route: 042
     Dates: start: 20181207, end: 20181207
  22. LEDERFOLIN [Concomitant]
     Active Substance: LEUCOVORIN CALCIUM
     Indication: PRODUCT USED FOR UNKNOWN INDICATION
     Dosage: 54 MG, CYCLICALLY
     Route: 042
     Dates: start: 20181223, end: 20181224
  23. UROMITEXAN [Suspect]
     Active Substance: MESNA
     Dosage: 700 MG, CYCLICALLY
     Route: 042
     Dates: start: 20181225, end: 20181225
  24. TN UNSPECIFIED [IFOSFAMIDE] [Suspect]
     Active Substance: IFOSFAMIDE
     Dosage: 1872 MG, CYCLICALLY
     Route: 042
     Dates: start: 20181223, end: 20181224
  25. URBASON [Concomitant]
     Active Substance: METHYLPREDNISOLONE
     Dosage: 10 MG, CYCLICALLY
     Route: 037
     Dates: start: 20181221, end: 20181221
  26. URBASON [Concomitant]
     Active Substance: METHYLPREDNISOLONE
     Indication: PREMEDICATION
     Dosage: 10 MG, CYCLICALLY
     Route: 037
     Dates: start: 20181115, end: 20181129
  27. BACTRIM [Concomitant]
     Active Substance: SULFAMETHOXAZOLE\TRIMETHOPRIM
     Indication: PRODUCT USED FOR UNKNOWN INDICATION
     Dosage: 2 DF, UNK
     Route: 048
  28. MYCOSTATIN [Concomitant]
     Active Substance: NYSTATIN
     Indication: PRODUCT USED FOR UNKNOWN INDICATION
     Dosage: 15 ML, QD
     Route: 048
  29. LASIX [Concomitant]
     Active Substance: FUROSEMIDE
     Indication: PRODUCT USED FOR UNKNOWN INDICATION
     Dosage: 40 MG, QD
     Route: 042
  30. ONCASPAR [Suspect]
     Active Substance: PEGASPARGASE
     Indication: ACUTE LYMPHOCYTIC LEUKAEMIA
     Dosage: 2925 KIU, UNK, CYCLICALLY
     Route: 042
     Dates: start: 20181204, end: 20181226
  31. UROMITEXAN [Suspect]
     Active Substance: MESNA
     Indication: ACUTE LYMPHOCYTIC LEUKAEMIA
     Dosage: 82 MG, CYCLICALLY
     Route: 042
     Dates: start: 20181130, end: 20181130

REACTIONS (2)
  - Aplasia [Unknown]
  - Diarrhoea [Unknown]

NARRATIVE: CASE EVENT DATE: 20181210
